FAERS Safety Report 4886097-3 (Version None)
Quarter: 2006Q1

REPORT INFORMATION
  Report Type: 
  Country: None (occurrence: None)
  Receive Date: 20060118
  Receipt Date: 20060118
  Transmission Date: 20060701
  Serious: Yes (Hospitalization)
  Sender: FDA-Public Use
  Company Number: None

PATIENT
  Age: 75 Year
  Sex: Female
  Weight: 52 kg

DRUGS (28)
  1. METHOTREXATE [Suspect]
     Indication: RHEUMATOID ARTHRITIS
     Dosage: 2.5 MG 5X/WK
  2. ATIVAN [Concomitant]
  3. ALBUTEROL SULFATE AUTOHALER [Concomitant]
  4. VICODIN [Concomitant]
  5. FLEXERIL [Concomitant]
  6. VIT B6 [Concomitant]
  7. REMICADE [Concomitant]
  8. IMODIUM [Concomitant]
  9. FOLIC ACID [Concomitant]
  10. HYDROCHLOROTHIAZIDE [Concomitant]
  11. GLYCOPYRROLATE [Concomitant]
  12. LOTRISONE [Concomitant]
  13. PAXIL [Concomitant]
  14. LASIX [Concomitant]
  15. MEDROL [Concomitant]
  16. TRAZODONE [Concomitant]
  17. DIOVAN [Concomitant]
  18. GLYBURIDE [Concomitant]
  19. SINGULAIR [Concomitant]
  20. ZETIA [Concomitant]
  21. NEURONTIN [Concomitant]
  22. ATENOLOL [Concomitant]
  23. ADVAIR DISKUS 100/50 [Concomitant]
  24. ASPIRIN [Concomitant]
  25. PLAVIX [Concomitant]
  26. LOPID [Concomitant]
  27. STARLIX [Concomitant]
  28. PRAVACHOL [Concomitant]

REACTIONS (8)
  - APHTHOUS STOMATITIS [None]
  - DEHYDRATION [None]
  - FATIGUE [None]
  - MUCOSAL EROSION [None]
  - ORAL INTAKE REDUCED [None]
  - ORAL PAIN [None]
  - PALATAL DISORDER [None]
  - TONGUE DISORDER [None]
